FAERS Safety Report 25386002 (Version 2)
Quarter: 2025Q2

REPORT INFORMATION
  Report Type: Spontaneous
  Country: US (occurrence: US)
  Receive Date: 20250602
  Receipt Date: 20250620
  Transmission Date: 20250717
  Serious: No
  Sender: COVIS PHARMA GMBH
  Company Number: US-AMAGP-2025COV00552

PATIENT
  Sex: Female

DRUGS (1)
  1. ALVESCO [Suspect]
     Active Substance: CICLESONIDE
     Indication: Multiple allergies
     Route: 065

REACTIONS (3)
  - Dysphonia [Unknown]
  - Treatment noncompliance [Unknown]
  - Product use in unapproved indication [Unknown]
